FAERS Safety Report 5446830-9 (Version None)
Quarter: 2007Q3

REPORT INFORMATION
  Report Type: 
  Country: None (occurrence: None)
  Receive Date: 20070907
  Receipt Date: 20070829
  Transmission Date: 20080115
  Serious: Yes (Other)
  Sender: FDA-Public Use
  Company Number: GB-PFIZER INC-2007072681

PATIENT
  Age: 40 Year
  Sex: Female
  Weight: 72.5 kg

DRUGS (5)
  1. VARENICLINE TABLETS [Suspect]
     Indication: SMOKING CESSATION THERAPY
     Route: 048
     Dates: start: 20070303, end: 20070311
  2. AMOXICILLIN [Concomitant]
     Indication: RESPIRATORY TRACT INFECTION
     Route: 048
     Dates: start: 20070116, end: 20070121
  3. CODEINE PHOSPHATE AND ACETAMINOPHEN [Concomitant]
     Indication: BACK PAIN
     Route: 048
     Dates: start: 20070223, end: 20070302
  4. DIHYDROCODEINE BITARTRATE INJ [Concomitant]
     Indication: BACK PAIN
     Route: 048
  5. OMEPRAZOLE [Concomitant]
     Indication: GASTROOESOPHAGEAL REFLUX DISEASE
     Route: 048

REACTIONS (7)
  - DYSURIA [None]
  - MOUTH ULCERATION [None]
  - NAUSEA [None]
  - PARAESTHESIA [None]
  - PRURITUS [None]
  - RECTAL HAEMORRHAGE [None]
  - URTICARIA [None]
